FAERS Safety Report 7622510-6 (Version None)
Quarter: 2011Q3

REPORT INFORMATION
  Report Type: 
  Country: None (occurrence: None)
  Receive Date: 20110719
  Receipt Date: 20110719
  Transmission Date: 20111222
  Serious: Yes (Death)
  Sender: FDA-Public Use
  Company Number: None

PATIENT
  Age: 68 Year
  Sex: Male

DRUGS (1)
  1. LUPRON [Suspect]
     Dosage: 30MG Q 4 MONTHS IM
     Route: 030
     Dates: start: 20110311

REACTIONS (1)
  - DEATH [None]
